FAERS Safety Report 8110689-1 (Version None)
Quarter: 2012Q1

REPORT INFORMATION
  Report Type: 
  Country: None (occurrence: None)
  Receive Date: 20120203
  Receipt Date: 20120126
  Transmission Date: 20120608
  Serious: Yes (Hospitalization)
  Sender: FDA-Public Use
  Company Number: US-BAYER-2011-035935

PATIENT
  Age: 31 Year
  Sex: Female
  Weight: 63 kg

DRUGS (1)
  1. YASMIN [Suspect]
     Dosage: UNK
     Route: 048
     Dates: start: 20070101, end: 20080101

REACTIONS (7)
  - TRANSIENT ISCHAEMIC ATTACK [None]
  - INJURY [None]
  - EMOTIONAL DISTRESS [None]
  - GENERAL PHYSICAL HEALTH DETERIORATION [None]
  - ANXIETY [None]
  - PAIN [None]
  - ANHEDONIA [None]
